FAERS Safety Report 5671701-2 (Version None)
Quarter: 2008Q2

REPORT INFORMATION
  Report Type: 
  Country: None (occurrence: None)
  Receive Date: 20080229
  Receipt Date: 20080116
  Transmission Date: 20081010
  Serious: Yes (Disabling)
  Sender: FDA-Public Use
  Company Number: PHEH2007US14612

PATIENT
  Age: 76 Year
  Sex: Male

DRUGS (3)
  1. EXJADE [Suspect]
     Indication: IRON OVERLOAD
     Dosage: 1500 MG, QD, ORAL
     Route: 048
     Dates: start: 20070406, end: 20070928
  2. REVLIMID [Concomitant]
  3. PROCRIT [Concomitant]

REACTIONS (2)
  - HYPOACUSIS [None]
  - RED BLOOD CELL COUNT INCREASED [None]
